FAERS Safety Report 20766304 (Version 1)
Quarter: 2022Q2

REPORT INFORMATION
  Report Type: Spontaneous
  Country: CN (occurrence: CN)
  Receive Date: 20220428
  Receipt Date: 20220428
  Transmission Date: 20220721
  Serious: Yes (Hospitalization)
  Sender: FDA-Public Use
  Company Number: CN-009507513-2204CHN007687

PATIENT
  Age: 1 Year
  Sex: Female
  Weight: 9.2 kg

DRUGS (4)
  1. CILASTATIN SODIUM\IMIPENEM [Suspect]
     Active Substance: CILASTATIN SODIUM\IMIPENEM
     Indication: Anti-infective therapy
     Dosage: 166MG, Q6H
     Route: 041
     Dates: start: 20220411, end: 20220413
  2. CEFTRIAXONE [Concomitant]
     Active Substance: CEFTRIAXONE
     Indication: Anti-infective therapy
     Dosage: 0.73 G, QD
     Route: 041
  3. PIPERACILLIN AND TAZOBACTAM [Concomitant]
     Active Substance: PIPERACILLIN SODIUM\TAZOBACTAM SODIUM
     Indication: Anti-infective therapy
     Dosage: 0.69 G, TID
     Route: 041
  4. SODIUM CHLORIDE [Concomitant]
     Active Substance: SODIUM CHLORIDE
     Indication: Medication dilution
     Dosage: 50 ML, Q6H
     Route: 041
     Dates: start: 20220411, end: 20220413

REACTIONS (2)
  - Diarrhoea [Not Recovered/Not Resolved]
  - Faeces discoloured [Unknown]

NARRATIVE: CASE EVENT DATE: 20220411
